FAERS Safety Report 6651537-6 (Version None)
Quarter: 2010Q1

REPORT INFORMATION
  Report Type: 
  Country: None (occurrence: None)
  Receive Date: 20100325
  Receipt Date: 20100317
  Transmission Date: 20100710
  Serious: Yes (Life-Threatening, Hospitalization)
  Sender: FDA-Public Use
  Company Number: A0850936A

PATIENT
  Age: 84 Year
  Sex: Female

DRUGS (5)
  1. PROMACTA [Suspect]
     Indication: THROMBOCYTOPENIA
     Dates: start: 20090910, end: 20091106
  2. IMMUNE GLOBULIN INTRAVENOUS (HUMAN) [Concomitant]
  3. LASIX [Concomitant]
  4. PREDNISONE [Concomitant]
  5. HYDROCHLOROTHIAZIDE [Concomitant]

REACTIONS (3)
  - HAEMORRHAGE INTRACRANIAL [None]
  - PNEUMONIA [None]
  - PULMONARY EMBOLISM [None]
